FAERS Safety Report 7153593-8 (Version None)
Quarter: 2010Q4

REPORT INFORMATION
  Report Type: 
  Country: None (occurrence: None)
  Receive Date: 20101208
  Receipt Date: 20101208
  Transmission Date: 20110411
  Serious: No
  Sender: FDA-Public Use
  Company Number: None

PATIENT
  Age: 48 Year
  Sex: Female

DRUGS (13)
  1. AMPYRA [Suspect]
     Indication: MULTIPLE SCLEROSIS
     Dosage: 10MG Q12 HOURS ORALLY
     Route: 048
     Dates: start: 20101003, end: 20101109
  2. CITALOPRAM [Concomitant]
  3. DARVOCET-N 100 [Concomitant]
  4. TEMAZEPAM [Concomitant]
  5. ATENOLOL [Concomitant]
  6. BACLOFEN [Concomitant]
  7. ZOMIG [Concomitant]
  8. CLONAZEPAM [Concomitant]
  9. AVONEX [Concomitant]
  10. DONEPEZIL HCL [Concomitant]
  11. AMITRIPTYLINE [Concomitant]
  12. PROVERA [Concomitant]
  13. GABAPENTIN [Concomitant]

REACTIONS (1)
  - CYSTITIS [None]
